FAERS Safety Report 19086476 (Version 1)
Quarter: 2021Q2

REPORT INFORMATION
  Report Type: Spontaneous
  Country: US (occurrence: US)
  Receive Date: 20210401
  Receipt Date: 20210401
  Transmission Date: 20210717
  Serious: Yes (Hospitalization)
  Sender: FDA-Public Use
  Company Number: None

PATIENT
  Age: 43 Year
  Sex: Female

DRUGS (9)
  1. ATORVASTATIN 40MG [Concomitant]
     Active Substance: ATORVASTATIN
     Dates: start: 20200522
  2. DICLOFENAC 1% GEL [Concomitant]
     Active Substance: DICLOFENAC
     Dates: start: 20201222, end: 20210120
  3. ALBUTEROL HFA [Concomitant]
     Active Substance: ALBUTEROL SULFATE
     Dates: start: 20200101
  4. PREDNISONE. [Concomitant]
     Active Substance: PREDNISONE
     Dates: start: 20190801
  5. GABAPENTIN 300MG [Concomitant]
     Active Substance: GABAPENTIN
     Dates: start: 20201228
  6. DUPIXENT [Suspect]
     Active Substance: DUPILUMAB
     Indication: ASTHMA
     Dosage: ?          OTHER FREQUENCY:EVERY 2 WEEKS;?
     Route: 058
     Dates: start: 20200910
  7. LANTUS U?100 VIAL [Concomitant]
     Dates: start: 20200508
  8. VITAMIN D3 50,000 UNTS [Concomitant]
     Dates: start: 20200529
  9. APIDRA [Concomitant]
     Active Substance: INSULIN GLULISINE
     Dates: start: 20200511

REACTIONS (1)
  - Rash [None]

NARRATIVE: CASE EVENT DATE: 20210315
